FAERS Safety Report 7391574-X (Version None)
Quarter: 2011Q2

REPORT INFORMATION
  Report Type: 
  Country: None (occurrence: None)
  Receive Date: 20110404
  Receipt Date: 20110323
  Transmission Date: 20111010
  Serious: Yes (Other)
  Sender: FDA-Public Use
  Company Number: PHHY2011CR24213

PATIENT
  Sex: Female

DRUGS (3)
  1. RIVOTRIL [Concomitant]
     Indication: STRESS
  2. DIOVAN [Suspect]
     Dosage: UNK
  3. NEBIVOLOL HCL [Concomitant]
     Dosage: UNK

REACTIONS (3)
  - HYPERTENSIVE CRISIS [None]
  - VOMITING [None]
  - HEADACHE [None]
